FAERS Safety Report 8190488-5 (Version None)
Quarter: 2012Q1

REPORT INFORMATION
  Report Type: 
  Country: None (occurrence: None)
  Receive Date: 20120307
  Receipt Date: 20120229
  Transmission Date: 20120608
  Serious: Yes (Hospitalization)
  Sender: FDA-Public Use
  Company Number: PHHY2012CH017900

PATIENT
  Age: 29 Year
  Sex: Male

DRUGS (4)
  1. BLEOMYCIN SULFATE [Suspect]
     Indication: GERM CELL CANCER
     Dosage: UNK UKN, UNK
  2. ETOPOSIDE [Suspect]
     Indication: GERM CELL CANCER
     Dosage: UNK UKN, UNK
  3. CISPLATIN [Suspect]
     Indication: GERM CELL CANCER
     Dosage: UNK UKN, UNK
  4. CARBOPLATIN [Suspect]
     Dosage: UNK UKN, UNK

REACTIONS (4)
  - SUBARACHNOID HAEMORRHAGE [None]
  - HEADACHE [None]
  - INTRACRANIAL VENOUS SINUS THROMBOSIS [None]
  - CONVULSION [None]
